FAERS Safety Report 7541638-2 (Version None)
Quarter: 2011Q2

REPORT INFORMATION
  Report Type: 
  Country: None (occurrence: None)
  Receive Date: 20110603
  Receipt Date: 20110519
  Transmission Date: 20111010
  Serious: No
  Sender: FDA-Public Use
  Company Number: 2011MA006152

PATIENT
  Sex: Female

DRUGS (4)
  1. VENLAFAXINE HYDROCHLORIDE [Suspect]
  2. ZOLPIDEM TARTRATE [Suspect]
  3. MIRTAZAPINE [Suspect]
  4. LORMETAZEPAM (LORMETAZEPAM) [Suspect]

REACTIONS (2)
  - SOPOR [None]
  - DRUG ABUSE [None]
